FAERS Safety Report 9006828 (Version 1)
Quarter: 2013Q1

REPORT INFORMATION
  Report Type: Spontaneous
  Country: US (occurrence: US)
  Receive Date: 20130110
  Receipt Date: 20130110
  Transmission Date: 20140127
  Serious: Yes (Death)
  Sender: FDA-Public Use
  Company Number: US-PFIZER INC-2013004398

PATIENT
  Age: 21 Year
  Sex: Male

DRUGS (1)
  1. DEXTROMETHORPHAN HBR [Suspect]

REACTIONS (2)
  - Drug abuse [Fatal]
  - Biopsy liver abnormal [None]
